FAERS Safety Report 5374852-5 (Version None)
Quarter: 2007Q2

REPORT INFORMATION
  Report Type: 
  Country: None (occurrence: None)
  Receive Date: 20070629
  Receipt Date: 20070626
  Transmission Date: 20071010
  Serious: Yes (Hospitalization)
  Sender: FDA-Public Use
  Company Number: B0475851A

PATIENT
  Age: 89 Year
  Sex: Female
  Weight: 33 kg

DRUGS (3)
  1. AUGMENTIN '125' [Suspect]
     Route: 048
  2. ZECLAR [Suspect]
     Dosage: 2TAB PER DAY
     Route: 048
     Dates: start: 20070322, end: 20070326
  3. ANTICOAGULANT [Concomitant]

REACTIONS (3)
  - RASH MACULO-PAPULAR [None]
  - RASH PRURITIC [None]
  - RENAL FAILURE ACUTE [None]
